FAERS Safety Report 12058537 (Version 1)
Quarter: 2016Q1

REPORT INFORMATION
  Report Type: Spontaneous
  Country: US (occurrence: None)
  Receive Date: 20160209
  Receipt Date: 20160209
  Transmission Date: 20160526
  Serious: Yes (Life-Threatening, Disabling, Other)
  Sender: FDA-Public Use
  Company Number: None

PATIENT
  Age: 57 Year
  Sex: Female
  Weight: 105.24 kg

DRUGS (40)
  1. IRON [Concomitant]
     Active Substance: IRON
  2. HYDROCHLOROTHIAZIDE. [Concomitant]
     Active Substance: HYDROCHLOROTHIAZIDE
  3. CAYENNE PEPPER [Concomitant]
     Active Substance: CAPSICUM
  4. MILK THISTLE [Concomitant]
     Active Substance: MILK THISTLE
  5. CYCLOBENZAPRINE [Concomitant]
     Active Substance: CYCLOBENZAPRINE
  6. ORLISTAT [Concomitant]
     Active Substance: ORLISTAT
  7. ASPIRIN. [Concomitant]
     Active Substance: ASPIRIN
  8. CALCIUM 500MG/VIT D [Concomitant]
  9. JANUVIA [Concomitant]
     Active Substance: SITAGLIPTIN PHOSPHATE
  10. CRANBERRY. [Concomitant]
     Active Substance: CRANBERRY
  11. GLUCOSE METABOLIC SUPPORT [Concomitant]
  12. KELP [Concomitant]
     Active Substance: KELP
  13. LIVER TONE [Concomitant]
  14. RAW PITUITARY GLAND (BOVINE) [Concomitant]
  15. ERYTHROMYCIN. [Concomitant]
     Active Substance: ERYTHROMYCIN
  16. POLYETHYL GLYCOL 3350 (MIRALAX) [Concomitant]
  17. CINNAMON. [Concomitant]
     Active Substance: CINNAMON
  18. TURMERIC, ASTRAGUS, + GOTU KOLA COMPLEX [Concomitant]
  19. POTASSIUM PLUS IODINE [Concomitant]
  20. INOSITOL [Concomitant]
     Active Substance: INOSITOL
  21. FENUGREEK SEED [Concomitant]
     Active Substance: FENUGREEK SEED
  22. GUAIFENESIN (MUCINEX) [Concomitant]
  23. TRAMADOL. [Concomitant]
     Active Substance: TRAMADOL
  24. DOCUSAT SODIUM [Concomitant]
  25. PHOSPHATIDYLSERINE [Concomitant]
  26. JANUVIA [Suspect]
     Active Substance: SITAGLIPTIN PHOSPHATE
  27. LIDODERM-LIDOCAINE [Concomitant]
  28. FOLIC ACID. [Concomitant]
     Active Substance: FOLIC ACID
  29. GLUCOSAMINE CHONDROITIN MSM /W 5-LOXIN [Concomitant]
  30. FEXOFENADINE (ALLEGRA) [Concomitant]
  31. GERITOL [Concomitant]
     Active Substance: MINERALS\VITAMINS
  32. BILBERRY + LUTEIN [Concomitant]
  33. GINKGO [Concomitant]
     Active Substance: GINKGO
  34. MUSHROOM BLEND + ASTRAGALUS ROOT EXT [Concomitant]
  35. VITAMIN D3 [Concomitant]
     Active Substance: CHOLECALCIFEROL
  36. THYROXIN - FREE, THYROID GLANDULAR [Concomitant]
  37. VITAMIN K-12 [Concomitant]
  38. LATANOPROST. [Concomitant]
     Active Substance: LATANOPROST
  39. BLADDERWRECK LEAVES [Concomitant]
  40. ZINC [Concomitant]
     Active Substance: ZINC\ZINC CHLORIDE

REACTIONS (10)
  - Bone pain [None]
  - Diarrhoea [None]
  - Constipation [None]
  - Headache [None]
  - Suicidal ideation [None]
  - Asthenia [None]
  - Renal pain [None]
  - Gastritis [None]
  - Internal haemorrhage [None]
  - Dehydration [None]

NARRATIVE: CASE EVENT DATE: 201502
